FAERS Safety Report 25733284 (Version 1)
Quarter: 2025Q3

REPORT INFORMATION
  Report Type: Spontaneous
  Country: US (occurrence: US)
  Receive Date: 20250828
  Receipt Date: 20250828
  Transmission Date: 20251021
  Serious: Yes (Hospitalization)
  Sender: SHILPA MEDICARE
  Company Number: US-KOANAAP-SML-US-2025-00404

PATIENT
  Sex: Male

DRUGS (3)
  1. IRINOTECAN [Suspect]
     Active Substance: IRINOTECAN
     Indication: Hepatic lesion
     Dates: start: 201608, end: 201906
  2. IRINOTECAN [Suspect]
     Active Substance: IRINOTECAN
     Indication: Adenocarcinoma
  3. IRINOTECAN [Suspect]
     Active Substance: IRINOTECAN
     Indication: Bone lesion

REACTIONS (3)
  - Pulmonary mass [Unknown]
  - Acute kidney injury [Unknown]
  - General physical health deterioration [Unknown]

NARRATIVE: CASE EVENT DATE: 20170101
